FAERS Safety Report 8025499-3 (Version None)
Quarter: 2012Q1

REPORT INFORMATION
  Report Type: 
  Country: None (occurrence: None)
  Receive Date: 20120105
  Receipt Date: 20120104
  Transmission Date: 20120608
  Serious: No
  Sender: FDA-Public Use
  Company Number: US-PFIZER INC-2011283170

PATIENT
  Sex: Female

DRUGS (3)
  1. PRISTIQ [Suspect]
     Indication: DEPRESSION
     Dosage: 50 MG, 1X/DAY
     Route: 048
     Dates: start: 20111101, end: 20111101
  2. PRISTIQ [Suspect]
     Indication: MENOPAUSAL SYMPTOMS
  3. PRISTIQ [Suspect]
     Indication: ANXIETY
     Dosage: UNK

REACTIONS (3)
  - DEREALISATION [None]
  - FEELING ABNORMAL [None]
  - DISTURBANCE IN ATTENTION [None]
